FAERS Safety Report 9792194 (Version 2)
Quarter: 2014Q1

REPORT INFORMATION
  Report Type: Spontaneous
  Country: FR (occurrence: FR)
  Receive Date: 20140102
  Receipt Date: 20140102
  Transmission Date: 20141002
  Serious: Yes (Life-Threatening, Hospitalization)
  Sender: FDA-Public Use
  Company Number: FR-ABBVIE-13P-056-1171942-00

PATIENT
  Age: 66 Year
  Sex: Female
  Weight: 95 kg

DRUGS (8)
  1. HUMIRA [Suspect]
     Indication: RHEUMATOID ARTHRITIS
     Dates: start: 2004
  2. NOVATREX [Suspect]
     Indication: RHEUMATOID ARTHRITIS
     Route: 048
  3. CORTANCYL [Suspect]
     Indication: RHEUMATOID ARTHRITIS
  4. CORTICOIDS (NOS) [Concomitant]
     Indication: PRODUCT USED FOR UNKNOWN INDICATION
  5. INSULIN [Concomitant]
     Indication: PRODUCT USED FOR UNKNOWN INDICATION
  6. LASILIX [Concomitant]
     Indication: PRODUCT USED FOR UNKNOWN INDICATION
  7. LEVOTHYROX [Concomitant]
     Indication: PRODUCT USED FOR UNKNOWN INDICATION
  8. KARDEGIC [Concomitant]
     Indication: PRODUCT USED FOR UNKNOWN INDICATION

REACTIONS (3)
  - Inappropriate antidiuretic hormone secretion [Recovering/Resolving]
  - Ophthalmic herpes zoster [Recovered/Resolved]
  - Meningoencephalitis herpetic [Recovering/Resolving]
